FAERS Safety Report 9223828 (Version 3)
Quarter: 2013Q2

REPORT INFORMATION
  Report Type: Spontaneous
  Country: US (occurrence: US)
  Receive Date: 20130410
  Receipt Date: 20130515
  Transmission Date: 20140414
  Serious: No
  Sender: FDA-Public Use
  Company Number: US-009507513-1304USA003473

PATIENT
  Age: 20 Year
  Sex: Female
  Weight: 54.42 kg

DRUGS (1)
  1. IMPLANON [Suspect]
     Indication: CONTRACEPTION
     Dosage: 1 ROD IN THE RIGHT ARM
     Route: 059
     Dates: start: 20120502

REACTIONS (4)
  - Hypoaesthesia [Unknown]
  - Device deployment issue [Unknown]
  - Medical device complication [Unknown]
  - Device difficult to use [Unknown]
